FAERS Safety Report 6907102-6 (Version None)
Quarter: 2010Q3

REPORT INFORMATION
  Report Type: 
  Country: None (occurrence: None)
  Receive Date: 20100804
  Receipt Date: 20090312
  Transmission Date: 20110219
  Serious: Yes (Hospitalization, Other)
  Sender: FDA-Public Use
  Company Number: US-PFIZER INC-2008056987

PATIENT
  Sex: Female
  Weight: 63.492 kg

DRUGS (4)
  1. MARAVIROC [Suspect]
     Indication: HIV INFECTION
     Dosage: 300 MG, 2X/DAY
     Route: 048
     Dates: start: 20050725, end: 20060124
  2. MARAVIROC [Suspect]
     Dosage: 300 MG, 2X/DAY
     Dates: start: 20060125
  3. COMBIVIR [Suspect]
     Indication: HIV INFECTION
     Dosage: 300/150 MG
     Route: 048
     Dates: start: 20050725, end: 20061221
  4. TRUVADA [Suspect]
     Indication: HIV INFECTION
     Dosage: 200MG/300MG,DAILY
     Route: 048
     Dates: start: 20061222

REACTIONS (2)
  - BREAST CALCIFICATIONS [None]
  - BREAST CANCER [None]
